FAERS Safety Report 14431701 (Version 2)
Quarter: 2018Q1

REPORT INFORMATION
  Report Type: Spontaneous
  Country: ES (occurrence: ES)
  Receive Date: 20180124
  Receipt Date: 20180125
  Transmission Date: 20180509
  Serious: Yes (Hospitalization)
  Sender: FDA-Public Use
  Company Number: ES-ABBVIE-18K-144-2233390-00

PATIENT
  Age: 64 Year
  Sex: Male
  Weight: 70 kg

DRUGS (2)
  1. ADALIMUMAB [Suspect]
     Active Substance: ADALIMUMAB
     Indication: RHEUMATOID ARTHRITIS
     Route: 058
     Dates: start: 20161208
  2. METOTREXATO CIPLA [Interacting]
     Active Substance: METHOTREXATE
     Indication: RHEUMATOID ARTHRITIS
     Route: 048
     Dates: start: 20131208

REACTIONS (5)
  - Face oedema [Unknown]
  - Non-Hodgkin^s lymphoma [Unknown]
  - Drug interaction [Unknown]
  - Cervical dilatation [Unknown]
  - Superior vena cava syndrome [Unknown]

NARRATIVE: CASE EVENT DATE: 20171208
